FAERS Safety Report 9180939 (Version 1)
Quarter: 2013Q1

REPORT INFORMATION
  Report Type: Report from Study
  Country: MX (occurrence: MX)
  Receive Date: 20130322
  Receipt Date: 20130322
  Transmission Date: 20140127
  Serious: Yes (Hospitalization, Other)
  Sender: FDA-Public Use
  Company Number: PHHO2007MX11320

PATIENT
  Age: 53 Year
  Sex: Female

DRUGS (6)
  1. CO-DIOVAN [Suspect]
     Indication: HYPERTENSION
     Dosage: UNK UKN, (80/12.5 MG)
  2. CO-DIOVAN [Suspect]
     Dosage: 1 DF, (160/25 MG) QD
     Route: 048
  3. AMLODIPINE [Suspect]
  4. METOPROLOL [Concomitant]
     Indication: HYPERTENSION
     Dosage: 1.5 DF, DAILY
     Dates: start: 200903
  5. ATORVASTATIN [Concomitant]
     Indication: BLOOD CHOLESTEROL
     Dosage: 1 DF, DAILY
     Dates: start: 201103
  6. ATORVASTATIN [Concomitant]
     Indication: BLOOD TRIGLYCERIDES

REACTIONS (7)
  - Infarction [Recovered/Resolved]
  - Hypertension [Recovered/Resolved]
  - Oedema [Unknown]
  - Pain in extremity [Recovered/Resolved]
  - Insomnia [Recovered/Resolved]
  - Headache [Recovered/Resolved]
  - Cough [Recovered/Resolved]
